FAERS Safety Report 6675128-6 (Version None)
Quarter: 2010Q2

REPORT INFORMATION
  Report Type: 
  Country: None (occurrence: None)
  Receive Date: 20100409
  Receipt Date: 20100330
  Transmission Date: 20101027
  Serious: Yes (Other)
  Sender: FDA-Public Use
  Company Number: CO-PFIZER INC-2010041994

PATIENT
  Age: 79 Year
  Sex: Male

DRUGS (5)
  1. LIPITOR [Suspect]
     Indication: BLOOD CHOLESTEROL INCREASED
     Dosage: 10 MG, ALTERNATE DAY
     Route: 048
     Dates: start: 20080101, end: 20091101
  2. LIPITOR [Suspect]
     Dosage: 10 MG, ALTERNATE DAY
     Route: 048
     Dates: start: 20100215
  3. ISOPTIN [Concomitant]
     Indication: HYPERTENSION
     Dosage: 120 MG, 2X/DAY
  4. HYDROCHLOROTHIAZIDE [Concomitant]
     Indication: HYPERTENSION
     Dosage: 25 MG, 1X/DAY
  5. EUGLUCON [Concomitant]
     Indication: BLOOD GLUCOSE
     Dosage: UNK

REACTIONS (1)
  - THROMBOSIS [None]
